FAERS Safety Report 9087431 (Version 1)
Quarter: 2013Q1

REPORT INFORMATION
  Report Type: Spontaneous
  Country: US (occurrence: US)
  Receive Date: 20130201
  Receipt Date: 20130201
  Transmission Date: 20140127
  Serious: No
  Sender: FDA-Public Use
  Company Number: US-009507513-2012SP036507

PATIENT
  Age: 64 Year
  Sex: Male
  Weight: 81.63 kg

DRUGS (5)
  1. CLARITIN-D 24 HOUR [Suspect]
     Indication: NASAL DISCOMFORT
     Dosage: 10 MG, QD
     Route: 048
     Dates: start: 20120525, end: 20120601
  2. CLARITIN-D 24 HOUR [Suspect]
     Indication: NASAL CONGESTION
  3. CLARITIN-D 24 HOUR [Suspect]
     Indication: MEDICAL OBSERVATION
  4. LIPITOR [Concomitant]
     Indication: BLOOD CHOLESTEROL INCREASED
     Dosage: UNK, UNKNOWN
  5. SUDAFED [Concomitant]
     Indication: SINUS CONGESTION
     Dosage: UNK, UNKNOWN

REACTIONS (3)
  - Palpitations [Recovered/Resolved]
  - Heart rate increased [Recovered/Resolved]
  - Drug ineffective [Unknown]
